FAERS Safety Report 14940921 (Version 2)
Quarter: 2018Q2

REPORT INFORMATION
  Report Type: Spontaneous
  Country: PL (occurrence: PL)
  Receive Date: 20180525
  Receipt Date: 20180614
  Transmission Date: 20180711
  Serious: Yes (Other)
  Sender: FDA-Public Use
  Company Number: PL-BRISTOL-MYERS SQUIBB COMPANY-BMS-2018-046514

PATIENT
  Age: 69 Year
  Sex: Male

DRUGS (1)
  1. NIVOLUMAB [Suspect]
     Active Substance: NIVOLUMAB
     Indication: MALIGNANT MELANOMA
     Dosage: 47 COURSES SO FAR
     Route: 065
     Dates: start: 20160720

REACTIONS (6)
  - Hypothyroidism [Unknown]
  - Malignant neoplasm progression [Unknown]
  - Hyperthyroidism [Recovered/Resolved]
  - Intestinal metastasis [Unknown]
  - Microcytic anaemia [Recovering/Resolving]
  - Gastrointestinal inflammation [Unknown]

NARRATIVE: CASE EVENT DATE: 201608
